FAERS Safety Report 21366116 (Version 3)
Quarter: 2022Q4

REPORT INFORMATION
  Report Type: Spontaneous
  Country: US (occurrence: US)
  Receive Date: 20220922
  Receipt Date: 20221116
  Transmission Date: 20230112
  Serious: Yes (Death, Hospitalization)
  Sender: FDA-Public Use
  Company Number: US-JNJFOC-20220944710

PATIENT
  Age: 83 Year
  Sex: Male

DRUGS (1)
  1. ERLEADA [Suspect]
     Active Substance: APALUTAMIDE
     Indication: Product used for unknown indication
     Route: 048
     Dates: start: 202111, end: 202206

REACTIONS (5)
  - Death [Fatal]
  - Hospitalisation [Unknown]
  - Bedridden [Unknown]
  - Ill-defined disorder [Unknown]
  - Weight decreased [Unknown]
